FAERS Safety Report 8177466-7 (Version None)
Quarter: 2012Q1

REPORT INFORMATION
  Report Type: 
  Country: None (occurrence: None)
  Receive Date: 20120301
  Receipt Date: 20120227
  Transmission Date: 20120608
  Serious: No
  Sender: FDA-Public Use
  Company Number: US-PFIZER INC-2012052572

PATIENT
  Sex: Female

DRUGS (4)
  1. LIVALO [Suspect]
     Dosage: 1 MG, 1X/DAY
     Route: 048
  2. CRESTOR [Suspect]
     Dosage: UNK
  3. LIPITOR [Suspect]
     Dosage: UNK
  4. SIMVASTATIN [Suspect]
     Dosage: UNK

REACTIONS (2)
  - HYPERCHOLESTEROLAEMIA [None]
  - DRUG INTOLERANCE [None]
